FAERS Safety Report 4420002-9 (Version None)
Quarter: 2004Q3

REPORT INFORMATION
  Report Type: 
  Country: None (occurrence: None)
  Receive Date: 20040804
  Receipt Date: 20040722
  Transmission Date: 20050211
  Serious: Yes (Other)
  Sender: FDA-Public Use
  Company Number: 2004050550

PATIENT
  Sex: Male
  Weight: 117.9352 kg

DRUGS (4)
  1. DILANTIN KAPSEAL [Suspect]
     Indication: CONVULSION
     Dosage: 400 MG (100 MG, 2 IN 1 D), ORAL
     Route: 048
  2. HYDROCHOROTHIAZIDE            (HYDROCHLOROTHIAZIDE) [Concomitant]
  3. SILDENFIL CITRATE         (SILDENAFIL CITRATE) [Concomitant]
  4. PHENOBARBITAL TAB [Concomitant]

REACTIONS (6)
  - AURA [None]
  - CONVULSION [None]
  - DIZZINESS [None]
  - MEDICATION ERROR [None]
  - NAUSEA [None]
  - PHARMACEUTICAL PRODUCT COMPLAINT [None]
